FAERS Safety Report 8951395 (Version 2)
Quarter: 2013Q1

REPORT INFORMATION
  Report Type: Spontaneous
  Country: BR (occurrence: BR)
  Receive Date: 20121207
  Receipt Date: 20130214
  Transmission Date: 20140127
  Serious: Yes (Other)
  Sender: FDA-Public Use
  Company Number: BR-JNJFOC-20121200122

PATIENT
  Age: 48 Year
  Sex: Male
  Weight: 52 kg

DRUGS (8)
  1. REMICADE [Suspect]
     Indication: CROHN^S DISEASE
     Route: 042
     Dates: start: 20111122
  2. REMICADE [Suspect]
     Indication: CROHN^S DISEASE
     Route: 042
     Dates: start: 20121114
  3. MESALAZINE [Concomitant]
     Route: 048
  4. FOLIC ACID [Concomitant]
     Route: 048
  5. OMEPRAZOLE [Concomitant]
     Route: 048
  6. PARACETAMOL [Concomitant]
     Route: 048
  7. GLUTAMINE [Concomitant]
     Route: 065
  8. PREDNISONE [Concomitant]
     Route: 048

REACTIONS (6)
  - Rash [Recovered/Resolved]
  - Eye irritation [Recovered/Resolved]
  - Infusion related reaction [Unknown]
  - Paraesthesia [Recovered/Resolved]
  - Blood pressure fluctuation [Unknown]
  - Heart rate increased [Unknown]
